FAERS Safety Report 22274915 (Version 1)
Quarter: 2023Q2

REPORT INFORMATION
  Report Type: Spontaneous
  Country: US (occurrence: US)
  Receive Date: 20230502
  Receipt Date: 20230502
  Transmission Date: 20230721
  Serious: No
  Sender: FDA-Public Use
  Company Number: US-RVL_Pharmaceuticals-USA-POI1255202300073

PATIENT
  Age: 69 Year
  Sex: Female

DRUGS (1)
  1. UPNEEQ [Suspect]
     Active Substance: OXYMETAZOLINE HYDROCHLORIDE
     Indication: Eyelid ptosis
     Dosage: OU
     Route: 047
     Dates: start: 20230311, end: 20230312

REACTIONS (4)
  - Eye irritation [Recovered/Resolved]
  - Eye pain [Recovered/Resolved]
  - Lacrimation increased [Recovered/Resolved]
  - Drug ineffective [Recovered/Resolved]

NARRATIVE: CASE EVENT DATE: 20230311
